FAERS Safety Report 8235938-0 (Version None)
Quarter: 2012Q1

REPORT INFORMATION
  Report Type: 
  Country: None (occurrence: None)
  Receive Date: 20120326
  Receipt Date: 20120322
  Transmission Date: 20120608
  Serious: Yes (Hospitalization)
  Sender: FDA-Public Use
  Company Number: US-MERCK-1203USA02648

PATIENT
  Age: 48 Year
  Sex: Female
  Weight: 65 kg

DRUGS (2)
  1. ZOCOR [Suspect]
     Indication: BLOOD CHOLESTEROL INCREASED
     Route: 065
     Dates: start: 20090101
  2. CENTRUM CARDIO [Suspect]
     Indication: CARDIAC DISORDER
     Route: 065
     Dates: start: 20120208, end: 20120222

REACTIONS (7)
  - DRUG INTERACTION [None]
  - DEPRESSION [None]
  - ANGER [None]
  - DELUSION [None]
  - MANIA [None]
  - IRRITABILITY [None]
  - MENTAL DISORDER [None]
